APPROVED DRUG PRODUCT: CYCLOBENZAPRINE HYDROCHLORIDE
Active Ingredient: CYCLOBENZAPRINE HYDROCHLORIDE
Strength: 10MG
Dosage Form/Route: TABLET;ORAL
Application: A072854 | Product #001
Applicant: AIPING PHARMACEUTICAL INC
Approved: Nov 19, 1991 | RLD: No | RS: No | Type: DISCN